FAERS Safety Report 6939698-2 (Version None)
Quarter: 2010Q3

REPORT INFORMATION
  Report Type: 
  Country: None (occurrence: None)
  Receive Date: 20100825
  Receipt Date: 20100816
  Transmission Date: 20110219
  Serious: No
  Sender: FDA-Public Use
  Company Number: US-BIOGENIDEC-2010BI016276

PATIENT
  Age: 16 Year
  Sex: Female

DRUGS (1)
  1. TYSABRI [Suspect]
     Indication: CROHN'S DISEASE
     Route: 042
     Dates: start: 20100512, end: 20100101

REACTIONS (5)
  - BODY TEMPERATURE INCREASED [None]
  - DIARRHOEA [None]
  - FLUSHING [None]
  - HEADACHE [None]
  - URTICARIA [None]
